FAERS Safety Report 15147612 (Version 6)
Quarter: 2020Q3

REPORT INFORMATION
  Report Type: Spontaneous
  Country: US (occurrence: US)
  Receive Date: 20180716
  Receipt Date: 20200706
  Transmission Date: 20201102
  Serious: No
  Sender: FDA-Public Use
  Company Number: US-PFIZER INC-2018284060

PATIENT
  Age: 63 Year
  Sex: Female

DRUGS (1)
  1. LATANOPROST. [Suspect]
     Active Substance: LATANOPROST
     Indication: GLAUCOMA
     Dosage: UNK
     Dates: start: 201105

REACTIONS (4)
  - Erythema [Unknown]
  - Eye pruritus [Unknown]
  - Drug hypersensitivity [Unknown]
  - Conjunctivitis [Unknown]
